FAERS Safety Report 6878895-1 (Version None)
Quarter: 2010Q3

REPORT INFORMATION
  Report Type: 
  Country: None (occurrence: None)
  Receive Date: 20100728
  Receipt Date: 20100625
  Transmission Date: 20110219
  Serious: No
  Sender: FDA-Public Use
  Company Number: US-BAYER-201017533BCC

PATIENT
  Age: 70 Year
  Sex: Female
  Weight: 61 kg

DRUGS (4)
  1. ALEVE [Suspect]
     Indication: HEADACHE
     Dosage: TOTAL DAILY DOSE: 440 MG  UNIT DOSE: 220 MG
     Route: 048
     Dates: start: 20100625
  2. CARVEDILOL [Concomitant]
     Dosage: UNIT DOSE: 6.25 MG
     Route: 065
  3. CVS OYSTERSHELL CALCIUM PLUS D [Concomitant]
     Route: 065
  4. CVS SLOW RELEASE IRON [Concomitant]
     Route: 065

REACTIONS (1)
  - HEADACHE [None]
